FAERS Safety Report 21742164 (Version 2)
Quarter: 2022Q4

REPORT INFORMATION
  Report Type: Spontaneous
  Country: FR (occurrence: FR)
  Receive Date: 20221216
  Receipt Date: 20221228
  Transmission Date: 20230113
  Serious: Yes (Other)
  Sender: FDA-Public Use
  Company Number: None

PATIENT

DRUGS (6)
  1. MENOPUR [Suspect]
     Active Substance: FOLLITROPIN\LUTEINIZING HORMONE
     Indication: In vitro fertilisation
     Dosage: 450 INTERNATIONAL UNIT, FOR 11 OR 12 DAYS
     Route: 065
     Dates: start: 202205
  2. MENOPUR [Suspect]
     Active Substance: FOLLITROPIN\LUTEINIZING HORMONE
     Dosage: 450 INTERNATIONAL UNIT, FOR 11 OR 12 DAYS
     Route: 065
     Dates: start: 202203
  3. MENOPUR [Suspect]
     Active Substance: FOLLITROPIN\LUTEINIZING HORMONE
     Dosage: 450 INTERNATIONAL UNIT, FOR 11 OR 12 DAYS
     Route: 065
     Dates: start: 202201
  4. MENOPUR [Suspect]
     Active Substance: FOLLITROPIN\LUTEINIZING HORMONE
     Dosage: 375 INTERNATIONAL UNIT
     Route: 042
     Dates: start: 202111
  5. SYNAREL [Suspect]
     Active Substance: NAFARELIN ACETATE
     Indication: Assisted fertilisation
     Route: 055
     Dates: start: 2021
  6. FOLLITROPIN\LUTROPIN ALFA [Suspect]
     Active Substance: FOLLITROPIN\LUTROPIN ALFA
     Indication: In vitro fertilisation
     Route: 058
     Dates: start: 202008

REACTIONS (2)
  - Granulomatous liver disease [Not Recovered/Not Resolved]
  - Product use issue [Unknown]
